FAERS Safety Report 9511401 (Version 2)
Quarter: 2013Q4

REPORT INFORMATION
  Report Type: Spontaneous
  Country: US (occurrence: US)
  Receive Date: 20130910
  Receipt Date: 20131010
  Transmission Date: 20140711
  Serious: No
  Sender: FDA-Public Use
  Company Number: US-009507513-1308USA014750

PATIENT
  Age: 60 Year
  Sex: Female

DRUGS (2)
  1. ASMANEX TWISTHALER [Suspect]
     Indication: ASTHMA
     Dosage: 220 MICROGRAM ONCE DAILY
     Route: 055
     Dates: start: 201208, end: 201308
  2. ASMANEX TWISTHALER [Suspect]
     Dosage: 220 MICROGRAM/ TWICE DAILY
     Route: 055
     Dates: start: 201308

REACTIONS (4)
  - Diarrhoea [Not Recovered/Not Resolved]
  - Hyperhidrosis [Not Recovered/Not Resolved]
  - Hot flush [Not Recovered/Not Resolved]
  - Headache [Not Recovered/Not Resolved]
